FAERS Safety Report 20905728 (Version 1)
Quarter: 2022Q2

REPORT INFORMATION
  Report Type: Spontaneous
  Country: FR (occurrence: FR)
  Receive Date: 20220602
  Receipt Date: 20220602
  Transmission Date: 20220720
  Serious: Yes (Hospitalization)
  Sender: FDA-Public Use
  Company Number: None

PATIENT
  Age: 55 Year
  Sex: Female
  Weight: 47.5 kg

DRUGS (4)
  1. FLUOROURACIL [Suspect]
     Active Substance: FLUOROURACIL
     Indication: Rectal cancer
     Dosage: THERAPY DURATION : 1 DAYS
     Route: 042
     Dates: start: 20210610, end: 20210610
  2. OXALIPLATIN [Suspect]
     Active Substance: OXALIPLATIN
     Indication: Rectal cancer
     Dosage: THERAPY DURATION : 1 DAYS
     Route: 042
     Dates: start: 20210610, end: 20210610
  3. BEVACIZUMAB [Suspect]
     Active Substance: BEVACIZUMAB
     Indication: Rectal cancer
     Dosage: ((MAMMAL/HAMSTER/CHO CELLS)),  THERAPY DURATION : 1 DAYS
     Route: 042
     Dates: start: 20210610, end: 20210610
  4. IRINOTECAN [Suspect]
     Active Substance: IRINOTECAN
     Indication: Rectal cancer
     Dosage: THERAPY DURATION : 1 DAYS
     Route: 042
     Dates: start: 20210610, end: 20210610

REACTIONS (1)
  - Pancreatitis acute [Recovering/Resolving]

NARRATIVE: CASE EVENT DATE: 20210614
